FAERS Safety Report 7906205-7 (Version None)
Quarter: 2011Q4

REPORT INFORMATION
  Report Type: 
  Country: None (occurrence: None)
  Receive Date: 20111110
  Receipt Date: 20111102
  Transmission Date: 20120403
  Serious: Yes (Other)
  Sender: FDA-Public Use
  Company Number: JP-ASTELLAS-2011JP007991

PATIENT
  Age: 10 Year
  Sex: Male

DRUGS (9)
  1. THIOTEPA [Concomitant]
     Dosage: 200 MG/M2, UNKNOWN/D
     Route: 065
  2. FLUDARABINE PHOSPHATE [Concomitant]
     Dosage: 30 MG/M2, UNKNOWN/D
     Route: 065
  3. MELPHALAN HYDROCHLORIDE [Concomitant]
     Dosage: 70 MG/M2, UNKNOWN/D
     Route: 065
  4. METHOTREXATE [Concomitant]
     Indication: PROPHYLAXIS AGAINST GRAFT VERSUS HOST DISEASE
     Route: 065
  5. DEXAMETHASONE [Concomitant]
     Route: 065
  6. PIRARUBICIN [Concomitant]
     Route: 065
  7. CYTARABINE [Concomitant]
     Route: 065
  8. VINCRISTINE [Concomitant]
     Route: 065
  9. PROGRAF [Suspect]
     Indication: PROPHYLAXIS AGAINST GRAFT VERSUS HOST DISEASE
     Route: 065

REACTIONS (3)
  - DRUG INEFFECTIVE [None]
  - ACUTE GRAFT VERSUS HOST DISEASE [None]
  - INFECTION [None]
